FAERS Safety Report 11145800 (Version 1)
Quarter: 2015Q2

REPORT INFORMATION
  Report Type: Report from Study
  Country: BR (occurrence: BR)
  Receive Date: 20150528
  Receipt Date: 20150528
  Transmission Date: 20150821
  Serious: Yes (Hospitalization)
  Sender: FDA-Public Use
  Company Number: BR-SA-2015SA067322

PATIENT
  Age: 98 Year
  Sex: Female
  Weight: 49 kg

DRUGS (7)
  1. ATENSINA [Concomitant]
     Active Substance: CLONIDINE
     Indication: BLOOD PRESSURE
     Route: 048
  2. LOSARTAN [Concomitant]
     Active Substance: LOSARTAN
     Indication: BLOOD PRESSURE
     Route: 048
  3. HEMIFUMARATE QUETIAPINE [Concomitant]
     Indication: SEDATIVE THERAPY
     Route: 048
  4. TIORFAN [Concomitant]
     Active Substance: RACECADOTRIL
     Indication: ROUTINE HEALTH MAINTENANCE
     Route: 048
  5. DONEPEZIL HYDROCHLORIDE. [Concomitant]
     Active Substance: DONEPEZIL HYDROCHLORIDE
     Indication: DEMENTIA ALZHEIMER^S TYPE
     Route: 048
  6. CLIKSTAR [Concomitant]
     Active Substance: CLIKSTAR
     Indication: DIABETES MELLITUS
     Route: 058
     Dates: start: 201411
  7. LANTUS [Suspect]
     Active Substance: INSULIN GLARGINE
     Indication: DIABETES MELLITUS
     Route: 058
     Dates: start: 201405

REACTIONS (1)
  - Pneumonia [Not Recovered/Not Resolved]

NARRATIVE: CASE EVENT DATE: 201502
